FAERS Safety Report 9053616 (Version 1)
Quarter: 2013Q1

REPORT INFORMATION
  Report Type: Spontaneous
  Country: US (occurrence: None)
  Receive Date: 20130201
  Receipt Date: 20130201
  Transmission Date: 20140127
  Serious: No
  Sender: FDA-Public Use
  Company Number: None

PATIENT
  Sex: Male

DRUGS (2)
  1. SORIATANE [Suspect]
     Indication: PSORIASIS
     Route: 048
  2. CLOBETASOL [Suspect]
     Indication: PSORIASIS

REACTIONS (3)
  - Alopecia [None]
  - Drug ineffective [None]
  - Skin disorder [None]
